FAERS Safety Report 4731479-3 (Version None)
Quarter: 2005Q3

REPORT INFORMATION
  Report Type: 
  Country: None (occurrence: None)
  Receive Date: 20050801
  Receipt Date: 20050801
  Transmission Date: 20060218
  Serious: Yes (Hospitalization, Other)
  Sender: FDA-Public Use
  Company Number: None

PATIENT
  Sex: Female
  Weight: 128 kg

DRUGS (3)
  1. ZYLOPRIM [Suspect]
     Indication: BURKITT'S LYMPHOMA
     Dosage: SEE IMAGE
     Route: 048
     Dates: start: 20050710
  2. CYCLOPHOSPHAMIDE [Suspect]
     Dosage: SEE IMAGE
     Route: 042
     Dates: start: 20050710, end: 20050713
  3. PREDNISONE [Suspect]
     Dosage: SEE IMAGE
     Route: 048
     Dates: start: 20050710, end: 20050716

REACTIONS (6)
  - ARTERIAL THROMBOSIS [None]
  - CATHETER RELATED COMPLICATION [None]
  - CEREBROVASCULAR ACCIDENT [None]
  - CONVULSION [None]
  - INCORRECT ROUTE OF DRUG ADMINISTRATION [None]
  - PROCEDURAL COMPLICATION [None]
